FAERS Safety Report 24328521 (Version 1)
Quarter: 2024Q3

REPORT INFORMATION
  Report Type: Report from Study
  Country: US (occurrence: US)
  Receive Date: 20240917
  Receipt Date: 20240917
  Transmission Date: 20241017
  Serious: Yes (Other)
  Sender: ABBVIE
  Company Number: US-ABBVIE-5923755

PATIENT
  Sex: Female

DRUGS (9)
  1. SKYRIZI [Suspect]
     Active Substance: RISANKIZUMAB-RZAA
     Indication: Psoriasis
     Dosage: DOSAGE STRENGTH: 150 MG
     Route: 058
     Dates: start: 202312
  2. PRAVASTATIN [Concomitant]
     Active Substance: PRAVASTATIN
     Indication: Product used for unknown indication
     Dosage: DOSAGE STRENGTH: 40 MG
  3. NEXIUM [Concomitant]
     Active Substance: ESOMEPRAZOLE MAGNESIUM
     Indication: Gastrooesophageal reflux disease
     Dosage: FORM STRENGTH: 40 MG
  4. REQUIP [Concomitant]
     Active Substance: ROPINIROLE HYDROCHLORIDE
     Indication: Restless legs syndrome
     Dosage: DOSAGE STRENGTH: 4 MG
  5. CETIRIZINE [Concomitant]
     Active Substance: CETIRIZINE HYDROCHLORIDE
     Indication: Multiple allergies
     Dosage: FORM STRENGTH: 10 MG
  6. TRAZODONE [Concomitant]
     Active Substance: TRAZODONE HYDROCHLORIDE
     Indication: Sleep disorder
     Dosage: DOSAGE STRENGTH: 50 MG FREQUENCY TEXT: AT NIGHT
  7. ELIQUIS [Concomitant]
     Active Substance: APIXABAN
     Indication: Atrial fibrillation
     Dosage: FORM STRENGTH: 2 MG
  8. ASPIRIN [Concomitant]
     Active Substance: ASPIRIN
     Indication: Atrial fibrillation
     Dosage: DOSAGE STRENGTH: 81 MG
  9. METOPROLOL [Concomitant]
     Active Substance: METOPROLOL
     Indication: Arterial occlusive disease
     Dosage: FORM STRENGTH: 25 MG

REACTIONS (5)
  - Aneurysm [Unknown]
  - Diplopia [Recovering/Resolving]
  - Memory impairment [Unknown]
  - Atrial fibrillation [Unknown]
  - Thinking abnormal [Unknown]

NARRATIVE: CASE EVENT DATE: 20240101
